FAERS Safety Report 10430944 (Version 1)
Quarter: 2014Q3

REPORT INFORMATION
  Report Type: Spontaneous
  Country: JP (occurrence: JP)
  Receive Date: 20140904
  Receipt Date: 20140904
  Transmission Date: 20150326
  Serious: Yes (Other)
  Sender: FDA-Public Use
  Company Number: PHHY2011JP122495

PATIENT

DRUGS (2)
  1. GLIVEC [Suspect]
     Active Substance: IMATINIB MESYLATE
     Indication: GASTROINTESTINAL STROMAL TUMOUR
     Dosage: 400 MG, PER DAY
     Dates: start: 20050119
  2. GLIVEC [Suspect]
     Active Substance: IMATINIB MESYLATE
     Dosage: 400 MG, PER DAY
     Dates: start: 20071220

REACTIONS (8)
  - White blood cell count decreased [Unknown]
  - Abdominal pain lower [Unknown]
  - Haematotoxicity [Unknown]
  - Platelet count decreased [Unknown]
  - Rash [Unknown]
  - Neoplasm recurrence [Unknown]
  - Oedema [Unknown]
  - Gastrointestinal stromal tumour [Unknown]

NARRATIVE: CASE EVENT DATE: 200709
